FAERS Safety Report 7452474-X (Version None)
Quarter: 2011Q2

REPORT INFORMATION
  Report Type: 
  Country: None (occurrence: None)
  Receive Date: 20110502
  Receipt Date: 20100927
  Transmission Date: 20111010
  Serious: No
  Sender: FDA-Public Use
  Company Number: US-ASTRAZENECA-2010SE45423

PATIENT
  Age: 86 Year
  Sex: Male
  Weight: 61.2 kg

DRUGS (2)
  1. NEXIUM [Suspect]
     Route: 048
     Dates: start: 20100301
  2. NEXIUM [Suspect]
     Indication: BARRETT'S OESOPHAGUS
     Route: 048
     Dates: start: 20050101

REACTIONS (4)
  - ABDOMINAL DISCOMFORT [None]
  - HYPOAESTHESIA [None]
  - BURNING SENSATION [None]
  - OESOPHAGEAL STENOSIS [None]
